FAERS Safety Report 7522761-5 (Version None)
Quarter: 2011Q2

REPORT INFORMATION
  Report Type: 
  Country: None (occurrence: None)
  Receive Date: 20110603
  Receipt Date: 20110523
  Transmission Date: 20111010
  Serious: Yes (Hospitalization, Other)
  Sender: FDA-Public Use
  Company Number: US-BAYER-201039661NA

PATIENT
  Age: 43 Year
  Sex: Female
  Weight: 115.65 kg

DRUGS (9)
  1. CYMBALTA [Concomitant]
     Dosage: 30 MG, TID
     Route: 048
  2. AUGMENTIN '125' [Concomitant]
  3. YASMIN [Suspect]
     Indication: CONTRACEPTION
     Dosage: UNK
     Route: 048
     Dates: start: 20050101, end: 20080101
  4. ESTROGEN NOS [Concomitant]
     Indication: MENSTRUAL CYCLE MANAGEMENT
  5. DROSPIRENONE AND ETHINYL ESTRADIOL [Suspect]
     Indication: CONTRACEPTION
     Route: 048
     Dates: start: 20080901, end: 20100801
  6. VITAMIN D [Concomitant]
  7. ALLEGRA D 24 HOUR [Concomitant]
     Route: 048
  8. FLONASE [Concomitant]
     Route: 055
  9. NEXIUM [Concomitant]
     Route: 048

REACTIONS (1)
  - PULMONARY EMBOLISM [None]
